FAERS Safety Report 4598815-2 (Version None)
Quarter: 2005Q1

REPORT INFORMATION
  Report Type: 
  Country: None (occurrence: None)
  Receive Date: 20050301
  Receipt Date: 20050215
  Transmission Date: 20050727
  Serious: Yes (Hospitalization, Other)
  Sender: FDA-Public Use
  Company Number: 2005032654

PATIENT
  Age: 48 Year
  Sex: Male
  Weight: 117.9352 kg

DRUGS (6)
  1. BEXTRA [Suspect]
     Indication: ARTHRITIS
     Dosage: 20 MG (20 MG, 1 IN 1 D)
     Dates: start: 20030501
  2. CELEBREX [Suspect]
     Indication: ARTHRITIS
     Dosage: 200 MG (200 MG, 1 IN 1 D)
     Dates: start: 19990201
  3. DIAZEPAM [Concomitant]
  4. METAXALONE [Concomitant]
  5. VICODIN [Concomitant]
  6. ULTRACET [Concomitant]

REACTIONS (7)
  - CARPAL TUNNEL DECOMPRESSION [None]
  - DIABETES MELLITUS [None]
  - DRUG INEFFECTIVE [None]
  - EYE SWELLING [None]
  - KNEE OPERATION [None]
  - RASH MACULAR [None]
  - RASH PRURITIC [None]
